FAERS Safety Report 12099320 (Version 2)
Quarter: 2016Q1

REPORT INFORMATION
  Report Type: Spontaneous
  Country: US (occurrence: US)
  Receive Date: 20160222
  Receipt Date: 20160304
  Transmission Date: 20160526
  Serious: No
  Sender: FDA-Public Use
  Company Number: US-PFIZER INC-2016088663

PATIENT
  Age: 64 Year
  Sex: Female

DRUGS (1)
  1. FOLIC ACID. [Suspect]
     Active Substance: FOLIC ACID
     Indication: DYSPEPSIA
     Dosage: 1 MG, 1X/DAY
     Dates: start: 201501

REACTIONS (1)
  - Drug ineffective for unapproved indication [Unknown]
